FAERS Safety Report 18606284 (Version 1)
Quarter: 2020Q4

REPORT INFORMATION
  Report Type: Report from Study
  Country: CA (occurrence: CA)
  Receive Date: 20201211
  Receipt Date: 20201211
  Transmission Date: 20210114
  Serious: Yes (Other)
  Sender: FDA-Public Use
  Company Number: CA-JNJFOC-20201206931

PATIENT
  Age: 55 Year
  Sex: Female

DRUGS (2)
  1. LYSOL [CRESOL] [Suspect]
     Active Substance: CRESOL
     Route: 065
  2. SIMPONI [Suspect]
     Active Substance: GOLIMUMAB
     Indication: RHEUMATOID ARTHRITIS
     Route: 058

REACTIONS (3)
  - Cough [Unknown]
  - Accidental exposure to product [Unknown]
  - Sinusitis [Unknown]
